FAERS Safety Report 16798056 (Version 2)
Quarter: 2019Q4

REPORT INFORMATION
  Report Type: Spontaneous
  Country: DE (occurrence: DE)
  Receive Date: 20190912
  Receipt Date: 20191009
  Transmission Date: 20200122
  Serious: Yes (Other)
  Sender: FDA-Public Use
  Company Number: DE-ALK-ABELLO A/S-2019AA003075

PATIENT

DRUGS (1)
  1. ACARIZAX [Suspect]
     Active Substance: DERMATOPHAGOIDES FARINAE\DERMATOPHAGOIDES PTERONYSSINUS
     Indication: MITE ALLERGY
     Dosage: 12 SQ-HDM
     Route: 060
     Dates: start: 201809, end: 201907

REACTIONS (2)
  - Aortitis [Unknown]
  - Immunoglobulin G4 related disease [Unknown]

NARRATIVE: CASE EVENT DATE: 201906
